FAERS Safety Report 4991007-4 (Version None)
Quarter: 2006Q2

REPORT INFORMATION
  Report Type: 
  Country: None (occurrence: None)
  Receive Date: 20060503
  Receipt Date: 20060424
  Transmission Date: 20061013
  Serious: Yes (Disabling)
  Sender: FDA-Public Use
  Company Number: PL-MERCK-0604POL00005

PATIENT
  Age: 20 Month

DRUGS (1)
  1. SINGULAIR [Suspect]
     Indication: ASTHMA
     Route: 065
     Dates: start: 20050101

REACTIONS (5)
  - DRUG ADMINISTRATION ERROR [None]
  - EPILEPSY [None]
  - HEMIPLEGIA [None]
  - POST PROCEDURAL COMPLICATION [None]
  - RUPTURED CEREBRAL ANEURYSM [None]
